FAERS Safety Report 8166035 (Version 4)
Quarter: 2014Q2

REPORT INFORMATION
  Report Type: Spontaneous
  Country: US (occurrence: US)
  Receive Date: 20111003
  Receipt Date: 20140404
  Transmission Date: 20141212
  Serious: Yes (Death, Hospitalization)
  Sender: FDA-Public Use
  Company Number: US-B.I. PHARMACEUTICALS,INC./RIDGEFIELD-2011-BP-22672BP

PATIENT
  Age: 76 Year
  Sex: Female
  Weight: 63.5 kg

DRUGS (8)
  1. PRADAXA [Suspect]
     Indication: ATRIAL FIBRILLATION
     Dosage: 300 MG
     Route: 048
     Dates: start: 20110725, end: 20120317
  2. PRADAXA [Suspect]
     Indication: CARDIAC DISORDER
  3. PRADAXA [Suspect]
     Indication: CEREBROVASCULAR ACCIDENT PROPHYLAXIS
  4. CELEXA [Concomitant]
     Indication: HOT FLUSH
     Dosage: 20 MG
     Route: 048
  5. CALCIUM [Concomitant]
     Indication: SUPPLEMENTATION THERAPY
     Route: 065
  6. FIORINAL [Concomitant]
     Indication: MIGRAINE
     Route: 065
  7. CRESTOR [Concomitant]
     Route: 065
  8. LIPITOR [Concomitant]
     Dosage: 40 MG
     Route: 048

REACTIONS (6)
  - Cerebral haemorrhage [Fatal]
  - Haemorrhagic stroke [Fatal]
  - Faeces soft [Not Recovered/Not Resolved]
  - Insomnia [Not Recovered/Not Resolved]
  - Thrombocytopenia [Unknown]
  - Haematochezia [Unknown]
